FAERS Safety Report 14901805 (Version 7)
Quarter: 2018Q3

REPORT INFORMATION
  Report Type: Spontaneous
  Country: CA (occurrence: CA)
  Receive Date: 20180516
  Receipt Date: 20180806
  Transmission Date: 20181010
  Serious: Yes (Hospitalization)
  Sender: FDA-Public Use
  Company Number: CA-CELLTRION INC.-2017CA009624

PATIENT

DRUGS (9)
  1. INFLECTRA [Suspect]
     Active Substance: INFLIXIMAB-DYYB
     Dosage: 640 MG, CYCLIC (EVERY 4 WEEKS)
     Route: 042
     Dates: start: 20180507
  2. CIPRO [Concomitant]
     Active Substance: CIPROFLOXACIN HYDROCHLORIDE
     Dosage: UNK
     Dates: start: 201806
  3. INFLECTRA [Suspect]
     Active Substance: INFLIXIMAB-DYYB
     Dosage: 386 MG, CYCLIC (EVERY 8 WEEKS)
     Route: 042
     Dates: start: 20180214, end: 20180214
  4. PREDNISONE. [Concomitant]
     Active Substance: PREDNISONE
     Dosage: 5MG? 40MG WEEKLY TAPER, THEN 8 TABLETS DAILY FOR 6 DAYS;AND DECREASED BY 1 TABLET EVERY WEEK UNTIL F
  5. INFLECTRA [Suspect]
     Active Substance: INFLIXIMAB-DYYB
     Dosage: 5 MG/KG CYCLIC (EVERY 8 WEEKS)
     Route: 042
     Dates: start: 20171219
  6. FLAGYL [Concomitant]
     Active Substance: METRONIDAZOLE\METRONIDAZOLE HYDROCHLORIDE
     Dosage: 1 TABLET TWICE DAILY
     Dates: start: 201806
  7. INFLECTRA [Suspect]
     Active Substance: INFLIXIMAB-DYYB
     Dosage: 400 MG  CYCLIC (5MG/KG EVERY 8 WEEKS)
     Route: 042
     Dates: start: 20180410, end: 20180410
  8. INFLECTRA [Suspect]
     Active Substance: INFLIXIMAB-DYYB
     Indication: CROHN^S DISEASE
     Dosage: 300 MG, CYCLIC (EVERY 0, 2, 6 WEEKS, THEN EVERY 8 WEEKS)
     Route: 042
     Dates: start: 20170718, end: 20180214
  9. INFLECTRA [Suspect]
     Active Substance: INFLIXIMAB-DYYB
     Dosage: 640 MG, CYCLIC (EVERY 4 WEEKS)
     Route: 042
     Dates: start: 20180621

REACTIONS (20)
  - Haemorrhoids [Not Recovered/Not Resolved]
  - Vomiting [Recovered/Resolved]
  - Crohn^s disease [Recovering/Resolving]
  - Crohn^s disease [Unknown]
  - Weight decreased [Recovered/Resolved]
  - Computerised tomogram abnormal [Unknown]
  - Weight fluctuation [Unknown]
  - Decreased appetite [Recovered/Resolved]
  - Asthenia [Unknown]
  - Condition aggravated [Recovering/Resolving]
  - Off label use [Unknown]
  - Skin warm [Unknown]
  - Dry skin [Unknown]
  - Nausea [Recovered/Resolved]
  - Pallor [Unknown]
  - Back pain [Unknown]
  - Heart rate irregular [Unknown]
  - Inappropriate schedule of drug administration [Unknown]
  - Weight increased [Unknown]
  - Blood pressure fluctuation [Unknown]

NARRATIVE: CASE EVENT DATE: 20170718
